FAERS Safety Report 18219268 (Version 3)
Quarter: 2023Q1

REPORT INFORMATION
  Report Type: Report from Study
  Country: US (occurrence: US)
  Receive Date: 20200901
  Receipt Date: 20230317
  Transmission Date: 20230418
  Serious: Yes (Hospitalization, Other)
  Sender: FDA-Public Use
  Company Number: US-SHIRE-US202028136

PATIENT
  Age: 57 Year
  Sex: Female
  Weight: 103 kg

DRUGS (14)
  1. PARATHYROID HORMONE [Suspect]
     Active Substance: PARATHYROID HORMONE
     Indication: Hypoparathyroidism
     Dosage: UNK
     Route: 058
     Dates: start: 20190701
  2. PARATHYROID HORMONE [Suspect]
     Active Substance: PARATHYROID HORMONE
     Indication: Hypoparathyroidism
     Dosage: UNK
     Route: 058
     Dates: start: 20190701
  3. PARATHYROID HORMONE [Suspect]
     Active Substance: PARATHYROID HORMONE
     Indication: Hypoparathyroidism
     Dosage: UNK
     Route: 058
     Dates: start: 20190701
  4. PARATHYROID HORMONE [Suspect]
     Active Substance: PARATHYROID HORMONE
     Dosage: 25 MICROGRAM, QD
     Route: 058
     Dates: start: 20190722
  5. PARATHYROID HORMONE [Suspect]
     Active Substance: PARATHYROID HORMONE
     Dosage: 25 MICROGRAM, QD
     Route: 058
     Dates: start: 20190722
  6. PARATHYROID HORMONE [Suspect]
     Active Substance: PARATHYROID HORMONE
     Dosage: 25 MICROGRAM, QD
     Route: 058
     Dates: start: 20190722
  7. PARATHYROID HORMONE [Suspect]
     Active Substance: PARATHYROID HORMONE
     Dosage: 25 MICROGRAM, QD
     Route: 058
     Dates: start: 20190725
  8. PARATHYROID HORMONE [Suspect]
     Active Substance: PARATHYROID HORMONE
     Dosage: 25 MICROGRAM, QD
     Route: 058
     Dates: start: 20190725
  9. PARATHYROID HORMONE [Suspect]
     Active Substance: PARATHYROID HORMONE
     Dosage: 25 MICROGRAM, QD
     Route: 058
     Dates: start: 20190725
  10. CALCIUM [Concomitant]
     Active Substance: CALCIUM
     Indication: Product used for unknown indication
  11. CALCITRIOL [Concomitant]
     Active Substance: CALCITRIOL
     Dosage: UNK
  12. LEVOTHYROXINE [Concomitant]
     Active Substance: LEVOTHYROXINE
     Dosage: UNK
  13. OMED [OMEPRAZOLE] [Concomitant]
     Dosage: UNK
  14. LEXAPRO [Concomitant]
     Active Substance: ESCITALOPRAM OXALATE

REACTIONS (9)
  - Hypocalcaemia [Recovering/Resolving]
  - Balance disorder [Unknown]
  - Gait disturbance [Unknown]
  - Tremor [Recovered/Resolved]
  - Confusional state [Recovered/Resolved]
  - Palpitations [Recovered/Resolved]
  - Asthenia [Recovered/Resolved]
  - Paraesthesia [Recovered/Resolved]
  - Dyspnoea [Recovered/Resolved]

NARRATIVE: CASE EVENT DATE: 20200818
